FAERS Safety Report 9938599 (Version 2)
Quarter: 2014Q1

REPORT INFORMATION
  Report Type: Spontaneous
  Country: US (occurrence: US)
  Receive Date: 20140303
  Receipt Date: 20140303
  Transmission Date: 20141002
  Serious: Yes (Disabling)
  Sender: FDA-Public Use
  Company Number: US-GE HEALTHCARE MEDICAL DIAGNOSTICS-OSCN-PR-0904S-0209

PATIENT
  Age: 58 Year
  Sex: Female

DRUGS (17)
  1. OMNISCAN [Suspect]
     Indication: MYALGIA
     Route: 042
     Dates: start: 20030226, end: 20030226
  2. OMNISCAN [Suspect]
     Indication: MUSCULAR WEAKNESS
     Route: 042
     Dates: start: 20010726, end: 20010726
  3. OMNISCAN [Suspect]
     Indication: HEADACHE
     Route: 042
     Dates: start: 20020731, end: 20020731
  4. OMNISCAN [Suspect]
     Indication: COORDINATION ABNORMAL
     Route: 042
     Dates: start: 20040622, end: 20040622
  5. OMNISCAN [Suspect]
     Indication: DEMYELINATION
     Route: 042
     Dates: start: 20050305, end: 20050305
  6. OMNISCAN [Suspect]
     Indication: ARTERIOVENOUS MALFORMATION
     Route: 042
     Dates: start: 20050718, end: 20050718
  7. OMNISCAN [Suspect]
     Indication: CEREBROVASCULAR ACCIDENT
     Route: 042
     Dates: start: 20050831, end: 20050831
  8. OMNISCAN [Suspect]
     Indication: CAROTID ARTERY STENOSIS
     Route: 042
     Dates: start: 20051216, end: 20051216
  9. OMNISCAN [Suspect]
     Indication: HEMIPARESIS
     Route: 042
     Dates: start: 20060312, end: 20060312
  10. OMNISCAN [Suspect]
     Indication: MULTIPLE SCLEROSIS
     Route: 042
     Dates: start: 19920617, end: 19920617
  11. OMNISCAN [Suspect]
     Indication: RENAL ARTERY STENOSIS
  12. OMNISCAN [Suspect]
     Indication: RADICULOPATHY
  13. OMNISCAN [Suspect]
     Indication: PRODUCT USED FOR UNKNOWN INDICATION
  14. MAGNEVIST [Suspect]
     Indication: PRODUCT USED FOR UNKNOWN INDICATION
     Route: 042
     Dates: start: 19920617, end: 19920617
  15. MAGNEVIST [Suspect]
     Route: 042
     Dates: start: 20031006, end: 20031006
  16. VISIPAQUE [Suspect]
     Indication: ARTERIOVENOUS FISTULA SITE COMPLICATION
     Route: 042
     Dates: start: 20030226, end: 20030226
  17. VISIPAQUE [Suspect]
     Route: 042
     Dates: start: 20031006, end: 20031006

REACTIONS (1)
  - Nephrogenic systemic fibrosis [Not Recovered/Not Resolved]
